FAERS Safety Report 9346916 (Version 1)
Quarter: 2013Q2

REPORT INFORMATION
  Report Type: Spontaneous
  Country: US (occurrence: US)
  Receive Date: 20130613
  Receipt Date: 20130613
  Transmission Date: 20140414
  Serious: Yes (Other)
  Sender: FDA-Public Use
  Company Number: PHEH2013US012585

PATIENT
  Sex: Female

DRUGS (6)
  1. VALSARTAN / DIOVAN [Suspect]
     Dosage: UNK UKN, QD (ONCE DAILY)
  2. LISINOPRIL [Concomitant]
     Dosage: UNK UKN, UNK
  3. IODINE [Concomitant]
     Dosage: UNK UKN, UNK
  4. ARMOUR THYROID [Concomitant]
     Dosage: 30 MG, UNK
  5. TRIAMTERENE/HCTZ [Concomitant]
     Dosage: UNK UKN, UNK
  6. DIAZEPAM [Concomitant]
     Dosage: UNK UKN, UNK

REACTIONS (3)
  - Thyroid disorder [Unknown]
  - Heart rate increased [Unknown]
  - Hyperhidrosis [Unknown]
